FAERS Safety Report 4867707-3 (Version None)
Quarter: 2005Q4

REPORT INFORMATION
  Report Type: 
  Country: None (occurrence: None)
  Receive Date: 20051227
  Receipt Date: 20051227
  Transmission Date: 20060501
  Serious: Yes (Other)
  Sender: FDA-Public Use
  Company Number: None

PATIENT
  Age: 47 Year
  Sex: Male
  Weight: 54.4316 kg

DRUGS (1)
  1. VISINE L.R. [Suspect]
     Indication: DRY EYE
     Dosage: 1 OR 2 DROPS  ONCE A DAY  OPHTHALMIC
     Route: 047

REACTIONS (4)
  - DRY EYE [None]
  - ERECTILE DYSFUNCTION [None]
  - INSTILLATION SITE ABNORMAL SENSATION [None]
  - LOSS OF LIBIDO [None]
